FAERS Safety Report 5738157-2 (Version None)
Quarter: 2008Q2

REPORT INFORMATION
  Report Type: 
  Country: None (occurrence: None)
  Receive Date: 20080514
  Receipt Date: 20080502
  Transmission Date: 20081010
  Serious: Yes (Hospitalization, Other)
  Sender: FDA-Public Use
  Company Number: BR-PFIZER INC-2008001769

PATIENT
  Sex: Female
  Weight: 86 kg

DRUGS (8)
  1. FRONTAL XR [Suspect]
     Indication: ANXIETY
     Route: 048
  2. LANSOPRAZOL [Concomitant]
  3. GINKGO BILOBA [Concomitant]
  4. DIMENHYDRINATE [Concomitant]
     Route: 048
  5. AMLODIPINE [Concomitant]
     Route: 048
     Dates: start: 20070901
  6. ALL OTHER THERAPEUTIC PRODUCTS [Concomitant]
  7. CLUSIVOL [Concomitant]
  8. DULOXETINE [Concomitant]

REACTIONS (25)
  - ANAEMIA [None]
  - BLOOD PRESSURE INCREASED [None]
  - BLOOD THYROID STIMULATING HORMONE INCREASED [None]
  - BONE PAIN [None]
  - CHOLELITHIASIS [None]
  - DEPRESSION [None]
  - DIARRHOEA [None]
  - DIZZINESS [None]
  - DRUG DEPENDENCE [None]
  - GASTRITIS [None]
  - GASTROOESOPHAGEAL REFLUX DISEASE [None]
  - HYPERGLYCAEMIA [None]
  - MALAISE [None]
  - NERVOUSNESS [None]
  - OEDEMA PERIPHERAL [None]
  - PAIN [None]
  - PANIC DISORDER [None]
  - PYREXIA [None]
  - SLEEP DISORDER [None]
  - STOMACH DISCOMFORT [None]
  - SUFFOCATION FEELING [None]
  - TACHYCARDIA [None]
  - TENDONITIS [None]
  - TONSILLAR DISORDER [None]
  - YELLOW SKIN [None]
